FAERS Safety Report 4384518-6 (Version None)
Quarter: 2004Q2

REPORT INFORMATION
  Report Type: 
  Country: None (occurrence: None)
  Receive Date: 20040610
  Receipt Date: 20040504
  Transmission Date: 20050107
  Serious: No
  Sender: FDA-Public Use
  Company Number: US-JNJFOC-20040205316

PATIENT
  Age: 74 Year
  Sex: Female
  Weight: 68.0396 kg

DRUGS (18)
  1. NATRECOR [Suspect]
     Indication: CARDIAC FAILURE CONGESTIVE
     Dosage: 0.01 UG/KG/MIN. INTRAVENOUS
     Route: 042
     Dates: start: 20040223
  2. NATRECOR [Suspect]
     Indication: FLUID OVERLOAD
     Dosage: 0.01 UG/KG/MIN. INTRAVENOUS
     Route: 042
     Dates: start: 20040223
  3. DOBUTAMINE (DOBUTAMINE) [Concomitant]
  4. INSULIN [Concomitant]
  5. SIMVASTATIN [Concomitant]
  6. KEPRA (LEVETIRACETAM) [Concomitant]
  7. MULTIVITAMIN [Concomitant]
  8. DOCUSATE SODIUM (DOCUSATE SODIUM) [Concomitant]
  9. SENEKOT (SENNA FRUIT) [Concomitant]
  10. FUROSEMIDE [Concomitant]
  11. K-DUR 10 [Concomitant]
  12. METOPROLOL (METOPROLOL) [Concomitant]
  13. VASOTEC [Concomitant]
  14. LASIX [Concomitant]
  15. COLACE (DOCUSATE SODIUM) [Concomitant]
  16. ZOCOR [Concomitant]
  17. BACTROBAN (MUPIROCIN) [Concomitant]
  18. MILK OF MAGNESIA (MAGNESIUM HYDROXIDE) [Concomitant]

REACTIONS (3)
  - DYSPNOEA [None]
  - RASH [None]
  - WHEEZING [None]
